FAERS Safety Report 4263854-8 (Version None)
Quarter: 2004Q1

REPORT INFORMATION
  Report Type: 
  Country: None (occurrence: None)
  Receive Date: 20040106
  Receipt Date: 20031226
  Transmission Date: 20041129
  Serious: Yes (Other)
  Sender: FDA-Public Use
  Company Number: PHBS2003BR14423

PATIENT
  Age: 64 Year
  Sex: Male
  Weight: 88 kg

DRUGS (5)
  1. MIACALCIN [Suspect]
     Indication: HERNIA
     Dosage: 3 TIMES A WEEK
     Dates: start: 20030801, end: 20031001
  2. ALLOPURINOL [Concomitant]
  3. METICORTEN [Concomitant]
  4. GLYBURIDE [Concomitant]
  5. VIAGRA [Concomitant]

REACTIONS (2)
  - AGEUSIA [None]
  - WEIGHT DECREASED [None]
